FAERS Safety Report 17955610 (Version 1)
Quarter: 2020Q2

REPORT INFORMATION
  Report Type: Spontaneous
  Country: US (occurrence: US)
  Receive Date: 20200626
  Receipt Date: 20200626
  Transmission Date: 20200714
  Serious: No
  Sender: FDA-Public Use
  Company Number: None

PATIENT
  Age: 57 Year
  Sex: Female
  Weight: 95.76 kg

DRUGS (22)
  1. TRAMADOL 50MG [Concomitant]
     Active Substance: TRAMADOL
  2. AMLODIPINE [Concomitant]
     Active Substance: AMLODIPINE BESYLATE
  3. ASPIRIN 81MG [Concomitant]
     Active Substance: ASPIRIN
  4. VITAMIN B12 [Concomitant]
     Active Substance: CYANOCOBALAMIN
  5. FLAGYL [Concomitant]
     Active Substance: METRONIDAZOLE\METRONIDAZOLE HYDROCHLORIDE
  6. OMEPRAZOLE 40MG [Concomitant]
     Active Substance: OMEPRAZOLE
  7. PRAVASTATIN. [Concomitant]
     Active Substance: PRAVASTATIN
  8. ATIVAN 0.5MG [Concomitant]
  9. PROAIR HFA [Concomitant]
     Active Substance: ALBUTEROL SULFATE
  10. VITAMIN D [Concomitant]
     Active Substance: VITAMIN D NOS
  11. AIRBORNE [Concomitant]
     Active Substance: HERBALS\MINERALS\VITAMINS
  12. LIDOCAINE 5% [Concomitant]
     Active Substance: LIDOCAINE
  13. VOLTAREN [Concomitant]
     Active Substance: DICLOFENAC SODIUM
  14. BENADRYL 25MG [Concomitant]
  15. MELOXICAM 15MG [Concomitant]
     Active Substance: MELOXICAM
  16. ZOFRAN 4MG/5ML [Concomitant]
  17. LOMOTIL 2.5-0.025MG [Concomitant]
  18. VERZENIO [Suspect]
     Active Substance: ABEMACICLIB
     Indication: BREAST CANCER
     Route: 048
     Dates: start: 20190712
  19. FAMOTIDINE 40MG [Concomitant]
     Active Substance: FAMOTIDINE
  20. IBRANCE [Concomitant]
     Active Substance: PALBOCICLIB
  21. CIPROFLOXACIN. [Concomitant]
     Active Substance: CIPROFLOXACIN
  22. ALBUTEROL SULFATE HFA [Concomitant]
     Active Substance: ALBUTEROL SULFATE

REACTIONS (3)
  - Pain [None]
  - Peripheral swelling [None]
  - Lacrimation increased [None]

NARRATIVE: CASE EVENT DATE: 20200626
